FAERS Safety Report 6423085-X (Version None)
Quarter: 2009Q4

REPORT INFORMATION
  Report Type: 
  Country: None (occurrence: None)
  Receive Date: 20091102
  Receipt Date: 20090901
  Transmission Date: 20100525
  Serious: Yes (Hospitalization)
  Sender: FDA-Public Use
  Company Number: FR-PFIZER INC-2009290708

PATIENT
  Age: 51 Year
  Sex: Male

DRUGS (4)
  1. HYDROXYZINE HCL [Suspect]
     Dosage: 75 MG, DAILY
     Route: 048
     Dates: start: 20090608, end: 20090611
  2. THERALENE [Suspect]
     Dosage: 40 GTT, DAILY
     Route: 048
     Dates: start: 20090608, end: 20090609
  3. CYAMEMAZINE [Suspect]
     Dosage: 80 MG, DAILY
     Route: 048
     Dates: start: 20090608, end: 20090609
  4. DULOXETINE HYDROCHLORIDE [Suspect]
     Dosage: 60 MG, DAILY
     Route: 048
     Dates: start: 20090608, end: 20090609

REACTIONS (1)
  - PRIAPISM [None]
